FAERS Safety Report 6577905-9 (Version None)
Quarter: 2010Q1

REPORT INFORMATION
  Report Type: 
  Country: None (occurrence: None)
  Receive Date: 20100211
  Receipt Date: 20100202
  Transmission Date: 20100710
  Serious: Yes (Disabling, Other)
  Sender: FDA-Public Use
  Company Number: US-BAYER-200942802NA

PATIENT
  Age: 57 Year
  Sex: Male

DRUGS (6)
  1. NEXAVAR [Suspect]
     Indication: HEPATIC NEOPLASM MALIGNANT
     Dosage: TOTAL DAILY DOSE: 800 MG  UNIT DOSE: 200 MG
     Route: 048
     Dates: start: 20091203, end: 20091231
  2. NEXAVAR [Suspect]
     Dosage: TOTAL DAILY DOSE: 400 MG  UNIT DOSE: 200 MG
     Route: 048
     Dates: start: 20100105, end: 20100101
  3. NEXAVAR [Suspect]
     Dosage: TOTAL DAILY DOSE: 400 MG  UNIT DOSE: 200 MG
     Route: 048
  4. LORTAB [Concomitant]
     Indication: PAIN
  5. HYDROCODONE [Concomitant]
  6. IBUPROFEN [Concomitant]

REACTIONS (9)
  - BLISTER [None]
  - GAIT DISTURBANCE [None]
  - HEPATIC PAIN [None]
  - LIMB DISCOMFORT [None]
  - PAIN IN EXTREMITY [None]
  - PRURITUS [None]
  - SCAB [None]
  - SKIN EXFOLIATION [None]
  - SKIN IRRITATION [None]
